FAERS Safety Report 8455014-1 (Version None)
Quarter: 2012Q2

REPORT INFORMATION
  Report Type: 
  Country: None (occurrence: None)
  Receive Date: 20120621
  Receipt Date: 20120613
  Transmission Date: 20120825
  Serious: Yes (Hospitalization, Disabling)
  Sender: FDA-Public Use
  Company Number: DE-SANOFI-AVENTIS-2012SA043109

PATIENT
  Age: 18 Year
  Sex: Male
  Weight: 84 kg

DRUGS (3)
  1. LANTUS [Suspect]
     Route: 058
  2. METFORMIN HCL [Concomitant]
     Indication: TYPE 2 DIABETES MELLITUS
     Route: 048
  3. LANTUS [Suspect]
     Route: 058
     Dates: start: 20120113

REACTIONS (1)
  - CEREBROVASCULAR ACCIDENT [None]
